FAERS Safety Report 4284820-2 (Version None)
Quarter: 2004Q1

REPORT INFORMATION
  Report Type: 
  Country: None (occurrence: None)
  Receive Date: 20040203
  Receipt Date: 20040203
  Transmission Date: 20041129
  Serious: Yes (Life-Threatening)
  Sender: FDA-Public Use
  Company Number: None

PATIENT
  Age: 26 Year
  Sex: Male
  Weight: 90.3 kg

DRUGS (11)
  1. CLOZAPINE [Suspect]
     Indication: PSYCHOTIC DISORDER
     Dosage: 300 MG PO HS
     Route: 048
     Dates: start: 20030626, end: 20040106
  2. DIVALPROEX ER [DEPAKOTE ER] [Concomitant]
  3. DOCUSATE SODIUM (COLACE) [Concomitant]
  4. PAROXETINE HCL (PAXIL) [Concomitant]
  5. QUETIAPINE FUMARATE (SEROQUEL) [Concomitant]
  6. RANITIDINE HCL (ZANTAC) [Concomitant]
  7. THERAPEUTIC MULTIPLE VITAMINS-MINERALS (THERA-M VITAMIN) [Concomitant]
  8. TYLENOL [Concomitant]
  9. ALUM + MAG HYDROXIDE-SIMETH SUSP (MYLANTA II) [Concomitant]
  10. CHLORAL HYDRATE (CHLORAL HYDRATE) [Concomitant]
  11. HYDROXYZINE PAMOATE (VISTARIL) [Concomitant]

REACTIONS (1)
  - NEUTROPHIL COUNT DECREASED [None]
